FAERS Safety Report 5124724-6 (Version None)
Quarter: 2006Q4

REPORT INFORMATION
  Report Type: 
  Country: None (occurrence: None)
  Receive Date: 20061006
  Receipt Date: 20061002
  Transmission Date: 20070319
  Serious: Yes (Death, Hospitalization)
  Sender: FDA-Public Use
  Company Number: HQWYE229109MAY06

PATIENT
  Age: 72 Year
  Sex: Female

DRUGS (14)
  1. RAPAMUNE [Suspect]
     Indication: PROPHYLAXIS AGAINST TRANSPLANT REJECTION
     Dosage: 3 MG 1X PER 1 DAY; ORAL
     Route: 048
     Dates: start: 20060228
  2. PREDNISOLONE [Concomitant]
  3. ASPIRIN [Concomitant]
  4. FERROUS SULFATE TAB [Concomitant]
  5. LANSOPRAZOLE [Concomitant]
  6. MYCOPHENOLAGE MOFETIL [Concomitant]
  7. MYCOPHENOLATE MOFETIL [Concomitant]
  8. POTASSIUM CHLORIDE [Concomitant]
  9. PHOSPHATE-SANDOZ (POTASSIUM BICARBONATE/SODIUM BICARBONATE/SODIUM PHOS [Concomitant]
  10. CO-TRIMAZOLE (SULFAMETHOXAZOLE/TRIMETHOPRIUM) [Concomitant]
  11. SIMVASTATIN [Concomitant]
  12. ATORVASTATIN CALCIUM [Concomitant]
  13. FRUSIMIDE [Concomitant]
  14. BISOPROLOL FUMARATE [Concomitant]

REACTIONS (9)
  - BACTERIA STOOL IDENTIFIED [None]
  - BLOOD CREATININE INCREASED [None]
  - CARDIAC ARREST [None]
  - DIVERTICULAR PERFORATION [None]
  - DIVERTICULITIS [None]
  - FALL [None]
  - GENERAL PHYSICAL HEALTH DETERIORATION [None]
  - LOSS OF CONSCIOUSNESS [None]
  - PERITONITIS [None]
